FAERS Safety Report 5961658-9 (Version None)
Quarter: 2008Q4

REPORT INFORMATION
  Report Type: 
  Country: None (occurrence: None)
  Receive Date: 20081119
  Receipt Date: 20081107
  Transmission Date: 20090506
  Serious: Yes (Hospitalization)
  Sender: FDA-Public Use
  Company Number: SPV1-2008-02495

PATIENT
  Age: 23 Month
  Sex: Male
  Weight: 15.1 kg

DRUGS (3)
  1. ELAPRASE [Suspect]
     Dosage: 0.5 MG/KG, 1X/WEEK, IV DRIP
     Route: 041
     Dates: start: 20080909
  2. ACETAMINOPHEN [Concomitant]
  3. CHLORPHENIRAMINE MALEATE [Concomitant]

REACTIONS (3)
  - CHILLS [None]
  - INFUSION RELATED REACTION [None]
  - PYREXIA [None]
